FAERS Safety Report 23274613 (Version 1)
Quarter: 2023Q4

REPORT INFORMATION
  Report Type: Spontaneous
  Country: RU (occurrence: None)
  Receive Date: 20231208
  Receipt Date: 20231208
  Transmission Date: 20240110
  Serious: Yes (Other)
  Sender: FDA-Public Use
  Company Number: 2023A274928

PATIENT
  Age: 63 Year
  Sex: Female

DRUGS (2)
  1. FULVESTRANT [Suspect]
     Active Substance: FULVESTRANT
     Route: 030
     Dates: start: 2018, end: 2021
  2. PALBOCICLIB [Concomitant]
     Active Substance: PALBOCICLIB
     Indication: Breast cancer metastatic
     Dates: start: 201801

REACTIONS (4)
  - Injection site abscess [Unknown]
  - Retinal detachment [Unknown]
  - Swelling face [Unknown]
  - Peripheral swelling [Unknown]
